FAERS Safety Report 24603804 (Version 4)
Quarter: 2025Q1

REPORT INFORMATION
  Report Type: Spontaneous
  Country: US (occurrence: US)
  Receive Date: 20241111
  Receipt Date: 20250324
  Transmission Date: 20250409
  Serious: Yes (Hospitalization, Other)
  Sender: BIOVITRUM
  Company Number: US-BIOVITRUM-2024-US-012342

PATIENT
  Age: 52 Year
  Sex: Female

DRUGS (1)
  1. KINERET [Suspect]
     Active Substance: ANAKINRA
     Indication: Still^s disease
     Route: 058
     Dates: start: 20190406

REACTIONS (10)
  - Intentional dose omission [Unknown]
  - Hepatic cancer [Unknown]
  - Pancreatitis [Unknown]
  - Hepatitis [Unknown]
  - Contusion [Unknown]
  - Thrombosis [Unknown]
  - Liver abscess [Unknown]
  - Post procedural complication [Unknown]
  - Postoperative abscess [Unknown]
  - Seasonal allergy [Unknown]
